FAERS Safety Report 8590164-0 (Version None)
Quarter: 2012Q3

REPORT INFORMATION
  Report Type: 
  Country: None (occurrence: None)
  Receive Date: 20120813
  Receipt Date: 20120808
  Transmission Date: 20120928
  Serious: Yes (Hospitalization, Other)
  Sender: FDA-Public Use
  Company Number: US-PFIZER INC-2012193943

PATIENT
  Age: 56 Year
  Sex: Female
  Weight: 65.8 kg

DRUGS (1)
  1. LYRICA [Suspect]
     Indication: NEURALGIA
     Dosage: 200 MG, 3X/DAY
     Route: 048
     Dates: start: 20060101

REACTIONS (4)
  - PNEUMONIA [None]
  - LOWER LIMB FRACTURE [None]
  - LIGAMENT SPRAIN [None]
  - TREMOR [None]
